FAERS Safety Report 25363654 (Version 1)
Quarter: 2025Q2

REPORT INFORMATION
  Report Type: Spontaneous
  Country: US (occurrence: None)
  Receive Date: 20250527
  Receipt Date: 20250527
  Transmission Date: 20250717
  Serious: Yes (Hospitalization)
  Sender: FDA-CTU
  Company Number: None

PATIENT
  Age: 41 Year
  Sex: Female
  Weight: 94.5 kg

DRUGS (1)
  1. LEXAPRO [Suspect]
     Active Substance: ESCITALOPRAM OXALATE
     Indication: Anxiety
     Dates: start: 20120330, end: 20120512

REACTIONS (6)
  - Insomnia [None]
  - Depression [None]
  - Movement disorder [None]
  - Diarrhoea [None]
  - Hormone level abnormal [None]
  - Nervous system disorder [None]

NARRATIVE: CASE EVENT DATE: 20120512
